FAERS Safety Report 5768121-9 (Version None)
Quarter: 2008Q2

REPORT INFORMATION
  Report Type: 
  Country: None (occurrence: None)
  Receive Date: 20080612
  Receipt Date: 20080602
  Transmission Date: 20081010
  Serious: Yes (Hospitalization)
  Sender: FDA-Public Use
  Company Number: US-ELI_LILLY_AND_COMPANY-US200806000184

PATIENT
  Age: 55 Year
  Sex: Female

DRUGS (4)
  1. CYMBALTA [Suspect]
     Indication: FIBROMYALGIA
     Dosage: 1 D/F, UNK
     Dates: start: 20070601
  2. CYMBALTA [Suspect]
     Dosage: 60 MG, DAILY (1/D)
     Dates: end: 20080526
  3. TRAMADOL HCL [Concomitant]
     Indication: PAIN
     Dosage: UNK, AS NEEDED
  4. IBUROFEN [Concomitant]
     Indication: PAIN
     Dosage: UNK, AS NEEDED

REACTIONS (6)
  - DIZZINESS [None]
  - FATIGUE [None]
  - HEARING IMPAIRED [None]
  - PHOTOPSIA [None]
  - URINARY INCONTINENCE [None]
  - WEIGHT INCREASED [None]
